FAERS Safety Report 4777272-7 (Version None)
Quarter: 2005Q3

REPORT INFORMATION
  Report Type: 
  Country: None (occurrence: None)
  Receive Date: 20050923
  Receipt Date: 20050912
  Transmission Date: 20060218
  Serious: Yes (Hospitalization)
  Sender: FDA-Public Use
  Company Number: 2005AC01309

PATIENT
  Age: 26775 Day
  Sex: Female

DRUGS (3)
  1. SELOKEEN ZOC [Suspect]
     Indication: HYPERTENSION
     Route: 048
     Dates: start: 20050609, end: 20050824
  2. DYTENZIDE [Concomitant]
  3. ATENOLOL [Concomitant]

REACTIONS (4)
  - BLOOD PRESSURE FLUCTUATION [None]
  - CIRCULATORY COLLAPSE [None]
  - COGNITIVE DETERIORATION [None]
  - LOSS OF CONSCIOUSNESS [None]
